FAERS Safety Report 5607944-3 (Version None)
Quarter: 2008Q1

REPORT INFORMATION
  Report Type: 
  Country: None (occurrence: None)
  Receive Date: 20080130
  Receipt Date: 20080125
  Transmission Date: 20080703
  Serious: Yes (Hospitalization, Other)
  Sender: FDA-Public Use
  Company Number: JP-MERCK-0712USA01086

PATIENT
  Age: 8 Week
  Sex: Male
  Weight: 4 kg

DRUGS (5)
  1. TRUSOPT [Suspect]
     Indication: INTRAOCULAR PRESSURE INCREASED
     Route: 047
     Dates: start: 20071030, end: 20071108
  2. XALATAN [Concomitant]
     Indication: INTRAOCULAR PRESSURE INCREASED
     Route: 047
     Dates: start: 20071030, end: 20071108
  3. SANPILO [Concomitant]
     Indication: MIOSIS
     Route: 047
     Dates: start: 20071024, end: 20071108
  4. CRAVIT [Concomitant]
     Indication: INFECTION PROPHYLAXIS
     Route: 047
     Dates: start: 20071024
  5. FLUMETHOLON [Concomitant]
     Indication: EYE INFLAMMATION
     Route: 047
     Dates: start: 20071024, end: 20071108

REACTIONS (6)
  - ASPIRATION [None]
  - C-REACTIVE PROTEIN INCREASED [None]
  - GASTROOESOPHAGEAL REFLUX DISEASE [None]
  - HEPATIC ENZYME INCREASED [None]
  - JAUNDICE [None]
  - WHITE BLOOD CELL COUNT INCREASED [None]
